FAERS Safety Report 8578058-8 (Version None)
Quarter: 2012Q3

REPORT INFORMATION
  Report Type: 
  Country: None (occurrence: None)
  Receive Date: 20120808
  Receipt Date: 20120803
  Transmission Date: 20120928
  Serious: Yes (Other)
  Sender: FDA-Public Use
  Company Number: PHHY2012CH051274

PATIENT
  Sex: Female
  Weight: 127 kg

DRUGS (1)
  1. TASIGNA [Suspect]
     Indication: CHRONIC MYELOID LEUKAEMIA
     Dosage: 800 MG, DAILY
     Route: 048
     Dates: start: 20120301, end: 20120608

REACTIONS (4)
  - NODULE [None]
  - MULTIPLE SCLEROSIS [None]
  - SYSTEMIC LUPUS ERYTHEMATOSUS [None]
  - PARAESTHESIA [None]
